FAERS Safety Report 8478276-3 (Version None)
Quarter: 2012Q2

REPORT INFORMATION
  Report Type: 
  Country: None (occurrence: None)
  Receive Date: 20120629
  Receipt Date: 20120618
  Transmission Date: 20120825
  Serious: Yes (Hospitalization, Other)
  Sender: FDA-Public Use
  Company Number: FR-JNJFOC-20120613953

PATIENT
  Sex: Female
  Weight: 60 kg

DRUGS (13)
  1. LOVENOX [Concomitant]
  2. XARELTO [Suspect]
     Route: 048
  3. ACETAMINOPHEN [Concomitant]
  4. XARELTO [Suspect]
     Route: 048
     Dates: start: 20120605, end: 20120610
  5. XARELTO [Suspect]
     Route: 048
  6. XARELTO [Suspect]
     Indication: KNEE ARTHROPLASTY
     Route: 048
     Dates: start: 20100101, end: 20100101
  7. XARELTO [Suspect]
     Indication: THROMBOSIS PROPHYLAXIS
     Route: 048
     Dates: start: 20100101, end: 20100101
  8. ACUPAN [Concomitant]
  9. XARELTO [Suspect]
     Route: 048
  10. XARELTO [Suspect]
     Indication: HIP ARTHROPLASTY
     Route: 048
     Dates: start: 20100101, end: 20100101
  11. XARELTO [Suspect]
     Route: 048
     Dates: start: 20120605, end: 20120610
  12. TRAMADOL HCL [Concomitant]
  13. XARELTO [Suspect]
     Route: 048
     Dates: start: 20120605, end: 20120610

REACTIONS (6)
  - GASTROINTESTINAL DISORDER [None]
  - SYNCOPE [None]
  - POST PROCEDURAL HAEMATOMA [None]
  - FEMUR FRACTURE [None]
  - DYSPEPSIA [None]
  - PAIN [None]
